FAERS Safety Report 4501093-3 (Version None)
Quarter: 2004Q4

REPORT INFORMATION
  Report Type: 
  Country: None (occurrence: None)
  Receive Date: 20041109
  Receipt Date: 20041026
  Transmission Date: 20050328
  Serious: Yes (Death)
  Sender: FDA-Public Use
  Company Number: USA041082401

PATIENT
  Sex: Male

DRUGS (2)
  1. OLANZAPINE [Suspect]
  2. FLUOXETINE [Concomitant]

REACTIONS (1)
  - DEATH [None]
